FAERS Safety Report 8819463 (Version 1)
Quarter: 2012Q4

REPORT INFORMATION
  Report Type: 
  Country: US (occurrence: US)
  Receive Date: 20121001
  Receipt Date: 20121001
  Transmission Date: 20130627
  Serious: No
  Sender: FDA-Public Use
  Company Number: US-009507513-1209USA012054

PATIENT
  Age: 48 Year
  Sex: Female

DRUGS (5)
  1. JANUMET [Suspect]
     Indication: TYPE 2 DIABETES MELLITUS
     Dosage: 50/500mg, qd
     Route: 048
  2. PRAVACHOL [Concomitant]
  3. LOSARTAN POTASSIUM [Concomitant]
  4. ASPIRIN [Concomitant]
  5. GLUCOVANCE [Concomitant]

REACTIONS (1)
  - Hepatic enzyme increased [Recovered/Resolved]
